FAERS Safety Report 11823101 (Version 1)
Quarter: 2015Q4

REPORT INFORMATION
  Report Type: Spontaneous
  Country: JP (occurrence: JP)
  Receive Date: 20151210
  Receipt Date: 20151210
  Transmission Date: 20160305
  Serious: Yes (Other)
  Sender: FDA-Public Use
  Company Number: JP-009507513-2004-09-1005

PATIENT
  Age: 41 Year
  Sex: Female

DRUGS (4)
  1. REBETOL [Suspect]
     Active Substance: RIBAVIRIN
     Dosage: DOSE: 200 MG, DURATION: 3 MONTH(S)
     Route: 048
     Dates: start: 20040525, end: 20040814
  2. REBETOL [Suspect]
     Active Substance: RIBAVIRIN
     Indication: PRODUCT USED FOR UNKNOWN INDICATION
     Dosage: DOSE: 400-200 MG*, DURATION: 3 MONTH(S)
     Route: 048
     Dates: start: 20040511, end: 20040814
  3. INTRON A [Suspect]
     Active Substance: INTERFERON ALFA-2B
     Indication: PRODUCT USED FOR UNKNOWN INDICATION
     Dosage: DOSE: 6 MU, DURATION: 4 CONTINUING
     Route: 030
     Dates: start: 20040511
  4. REBETOL [Suspect]
     Active Substance: RIBAVIRIN
     Dosage: DOSE: 400 MG, DURATION: 14 DAY(S)
     Route: 048
     Dates: start: 20040511, end: 20040524

REACTIONS (2)
  - Exposure during pregnancy [Unknown]
  - Abortion induced [Unknown]

NARRATIVE: CASE EVENT DATE: 200407
